FAERS Safety Report 14099555 (Version 2)
Quarter: 2017Q4

REPORT INFORMATION
  Report Type: Spontaneous
  Country: DE (occurrence: DE)
  Receive Date: 20171017
  Receipt Date: 20171026
  Transmission Date: 20180321
  Serious: Yes (Hospitalization)
  Sender: FDA-Public Use
  Company Number: DE-EISAI MEDICAL RESEARCH-EC-2017-031196

PATIENT
  Age: 54 Year
  Sex: Male

DRUGS (2)
  1. LENVIMA [Suspect]
     Active Substance: LENVATINIB
     Indication: PAPILLARY THYROID CANCER
     Route: 048
     Dates: start: 20161201, end: 201702
  2. LENVIMA [Suspect]
     Active Substance: LENVATINIB
     Route: 048
     Dates: start: 20170331, end: 201707

REACTIONS (1)
  - Colitis [Recovered/Resolved]

NARRATIVE: CASE EVENT DATE: 20170221
